FAERS Safety Report 10722635 (Version 1)
Quarter: 2015Q1

REPORT INFORMATION
  Report Type: Other
  Country: NL (occurrence: NL)
  Receive Date: 20150120
  Receipt Date: 20150120
  Transmission Date: 20150721
  Serious: No
  Sender: FDA-Public Use
  Company Number: NL-LUPIN PHARMACEUTICALS INC.-2014-01866

PATIENT
  Sex: Female

DRUGS (1)
  1. QUETIAPINE [Suspect]
     Active Substance: QUETIAPINE
     Indication: BIPOLAR DISORDER
     Route: 065

REACTIONS (2)
  - Restless legs syndrome [Not Recovered/Not Resolved]
  - Paraesthesia [Not Recovered/Not Resolved]
